FAERS Safety Report 26126459 (Version 1)
Quarter: 2025Q4

REPORT INFORMATION
  Report Type: Spontaneous
  Country: US (occurrence: US)
  Receive Date: 20251205
  Receipt Date: 20251205
  Transmission Date: 20260118
  Serious: Yes (Other)
  Sender: AMGEN
  Company Number: US-AMGEN-USASP2025236081

PATIENT
  Age: 48 Year
  Sex: Female

DRUGS (1)
  1. PREDNISONE [Suspect]
     Active Substance: PREDNISONE
     Indication: Immunosuppressant drug therapy
     Dosage: 5 MILLIGRAM, QD
     Route: 065

REACTIONS (4)
  - Adrenal haemorrhage [Unknown]
  - Phaeochromocytoma crisis [Unknown]
  - Acute myocardial infarction [Unknown]
  - Diabetic ketoacidosis [Unknown]
